FAERS Safety Report 12632431 (Version 2)
Quarter: 2016Q3

REPORT INFORMATION
  Report Type: Spontaneous
  Country: US (occurrence: US)
  Receive Date: 20160808
  Receipt Date: 20160808
  Transmission Date: 20161109
  Serious: No
  Sender: FDA-Public Use
  Company Number: US-BEH-2016062826

PATIENT
  Sex: Male
  Weight: 32 kg

DRUGS (30)
  1. HIZENTRA [Suspect]
     Active Substance: HUMAN IMMUNOGLOBULIN G
     Route: 058
  2. CENTRUM [Concomitant]
     Active Substance: VITAMINS
  3. RETIN-A [Concomitant]
     Active Substance: TRETINOIN
  4. VITAMIN C [Concomitant]
     Active Substance: ASCORBIC ACID
  5. HYDROXYZINE [Concomitant]
     Active Substance: HYDROXYZINE\HYDROXYZINE HYDROCHLORIDE
  6. XYZAL [Concomitant]
     Active Substance: LEVOCETIRIZINE DIHYDROCHLORIDE
  7. QVAR [Concomitant]
     Active Substance: BECLOMETHASONE DIPROPIONATE
  8. LEVOCETIRIZINE [Concomitant]
     Active Substance: LEVOCETIRIZINE
  9. HIZENTRA [Suspect]
     Active Substance: HUMAN IMMUNOGLOBULIN G
     Route: 058
  10. PATANASE [Concomitant]
     Active Substance: OLOPATADINE HYDROCHLORIDE
  11. DOXEPIN [Concomitant]
     Active Substance: DOXEPIN
  12. EPIPEN [Concomitant]
     Active Substance: EPINEPHRINE
  13. HIZENTRA [Suspect]
     Active Substance: HUMAN IMMUNOGLOBULIN G
     Indication: SELECTIVE IGG SUBCLASS DEFICIENCY
     Route: 058
  14. OMNARIS [Concomitant]
     Active Substance: CICLESONIDE
  15. IBUPROFEN. [Concomitant]
     Active Substance: IBUPROFEN
  16. ZOFRAN [Concomitant]
     Active Substance: ONDANSETRON HYDROCHLORIDE
  17. SINGULAIR [Concomitant]
     Active Substance: MONTELUKAST SODIUM
  18. DIPHENHYDRAMINE. [Concomitant]
     Active Substance: DIPHENHYDRAMINE
  19. PROTOPIC [Concomitant]
     Active Substance: TACROLIMUS
  20. PULMICORT TURBUHALER [Concomitant]
     Active Substance: BUDESONIDE
  21. BENZODIAZEPINE DERIVATIVES [Concomitant]
     Active Substance: BENZODIAZEPINE
  22. BACTROBAN NASAL [Concomitant]
  23. LACTULOSE. [Concomitant]
     Active Substance: LACTULOSE
  24. SILVADENE [Concomitant]
     Active Substance: SILVER SULFADIAZINE
  25. XOPENEX [Concomitant]
     Active Substance: LEVALBUTEROL HYDROCHLORIDE
  26. LAMICTAL [Concomitant]
     Active Substance: LAMOTRIGINE
  27. EPIPEN [Concomitant]
     Active Substance: EPINEPHRINE
  28. VITAMIN D2 [Concomitant]
     Active Substance: ERGOCALCIFEROL
  29. METADATE [Concomitant]
     Active Substance: METHYLPHENIDATE HYDROCHLORIDE
  30. PREVACID [Concomitant]
     Active Substance: LANSOPRAZOLE

REACTIONS (4)
  - Pain in jaw [Unknown]
  - Headache [Unknown]
  - Diarrhoea [Unknown]
  - Nausea [Unknown]
